FAERS Safety Report 23689049 (Version 4)
Quarter: 2025Q1

REPORT INFORMATION
  Report Type: Spontaneous
  Country: JP (occurrence: JP)
  Receive Date: 20240329
  Receipt Date: 20250127
  Transmission Date: 20250409
  Serious: Yes (Hospitalization, Other)
  Sender: ELI LILLY AND COMPANY
  Company Number: JP-ELI_LILLY_AND_COMPANY-JP202403013571

PATIENT
  Age: 77 Year
  Sex: Female

DRUGS (1)
  1. OLUMIANT [Suspect]
     Active Substance: BARICITINIB
     Indication: Rheumatoid arthritis
     Dosage: 4 MG, DAILY
     Route: 048
     Dates: end: 20230310

REACTIONS (7)
  - Mycobacterium kansasii infection [Recovered/Resolved]
  - Infective spondylitis [Unknown]
  - Thoracic vertebral fracture [Unknown]
  - Deep vein thrombosis [Unknown]
  - General physical health deterioration [Unknown]
  - Osteoporosis [Unknown]
  - Scoliosis [Unknown]

NARRATIVE: CASE EVENT DATE: 20230301
